FAERS Safety Report 10003319 (Version 2)
Quarter: 2014Q2

REPORT INFORMATION
  Report Type: Spontaneous
  Country: US (occurrence: US)
  Receive Date: 20140312
  Receipt Date: 20140408
  Transmission Date: 20141212
  Serious: Yes (Hospitalization)
  Sender: FDA-Public Use
  Company Number: US-GLAXOSMITHKLINE-A1063552A

PATIENT
  Age: 46 Year
  Sex: Female

DRUGS (10)
  1. BENLYSTA [Suspect]
     Indication: SYSTEMIC LUPUS ERYTHEMATOSUS
     Route: 042
     Dates: start: 201209
  2. PLAQUENIL [Concomitant]
  3. FOLTX [Concomitant]
  4. CYMBALTA [Concomitant]
  5. XANAX [Concomitant]
  6. PERCOCET [Concomitant]
  7. NEXIUM [Concomitant]
  8. SUMATRIPTAN [Concomitant]
  9. METHOTREXATE [Concomitant]
  10. IBUPROFEN [Concomitant]

REACTIONS (4)
  - Cholecystectomy [Recovered/Resolved]
  - Nephrolithiasis [Recovered/Resolved]
  - Biliary tract disorder [Recovered/Resolved]
  - Malaise [Unknown]
